FAERS Safety Report 7495750-7 (Version None)
Quarter: 2011Q2

REPORT INFORMATION
  Report Type: 
  Country: None (occurrence: None)
  Receive Date: 20110523
  Receipt Date: 20110509
  Transmission Date: 20111010
  Serious: Yes (Other)
  Sender: FDA-Public Use
  Company Number: US-ELI_LILLY_AND_COMPANY-US201105002473

PATIENT
  Age: 52 Year
  Sex: Male
  Weight: 111 kg

DRUGS (11)
  1. OXYCONTIN [Concomitant]
     Dosage: UNK, UNKNOWN
  2. CYMBALTA [Suspect]
     Dosage: 40 MG, BID
  3. CYMBALTA [Suspect]
     Indication: FIBROMYALGIA
     Dosage: 20 MG, BID
  4. CYMBALTA [Suspect]
     Dosage: 60 MG, BID
     Dates: end: 20110201
  5. LYRICA [Concomitant]
     Indication: FIBROMYALGIA
     Dosage: UNK, UNKNOWN
  6. LYRICA [Concomitant]
     Dosage: 225 MG, BID
     Dates: end: 20110201
  7. OXYCONTIN [Concomitant]
     Indication: FIBROMYALGIA
     Dosage: 10 MG, BID
     Route: 048
     Dates: start: 20080101
  8. CYMBALTA [Suspect]
     Dosage: 30 MG, BID
  9. LYRICA [Concomitant]
     Dosage: 225 MG, BID
     Route: 048
     Dates: start: 20110301
  10. OXYCONTIN [Concomitant]
     Dosage: 80 MG, TID
     Dates: end: 20110201
  11. LYRICA [Concomitant]
     Dosage: 225 MG, UNKNOWN

REACTIONS (4)
  - PAIN [None]
  - MIGRAINE [None]
  - OCCIPITAL NEURALGIA [None]
  - DRUG INEFFECTIVE [None]
